FAERS Safety Report 8289996-8 (Version None)
Quarter: 2012Q2

REPORT INFORMATION
  Report Type: 
  Country: None (occurrence: None)
  Receive Date: 20120417
  Receipt Date: 20111216
  Transmission Date: 20120825
  Serious: No
  Sender: FDA-Public Use
  Company Number: US-PFIZER INC-2012033344

PATIENT
  Sex: Female

DRUGS (15)
  1. COMPAZINE [Suspect]
     Indication: NAUSEA
     Route: 065
  2. EXCEDRIN (MIGRAINE) [Suspect]
     Indication: HEADACHE
     Route: 065
  3. MULTI-VITAMINS [Concomitant]
     Indication: VITAMIN SUPPLEMENTATION
     Route: 065
  4. ALBUTEROL [Suspect]
     Indication: ASTHMA
     Route: 065
  5. AMBIEN [Suspect]
     Indication: PRODUCT USED FOR UNKNOWN INDICATION
     Route: 065
  6. TYLENOL W/ CODEINE [Suspect]
     Indication: HEADACHE
     Route: 048
  7. TESSALON [Suspect]
     Route: 048
  8. LYRICA [Suspect]
     Indication: PRODUCT USED FOR UNKNOWN INDICATION
     Route: 065
  9. IRON [Concomitant]
     Indication: PROPHYLAXIS
     Route: 065
  10. TOPAMAX [Suspect]
     Indication: MIGRAINE
     Route: 048
     Dates: start: 20060101
  11. COMPAZINE [Suspect]
     Indication: VOMITING
     Route: 065
  12. ZOFRAN [Suspect]
     Indication: PRODUCT USED FOR UNKNOWN INDICATION
     Route: 065
  13. SYMBICORT [Suspect]
     Indication: ASTHMA
     Route: 065
  14. IBUPROFEN [Suspect]
     Indication: HEADACHE
     Route: 065
     Dates: start: 20080609
  15. AXOTAL [Suspect]
     Indication: PRODUCT USED FOR UNKNOWN INDICATION
     Route: 065

REACTIONS (2)
  - STRESS [None]
  - DEPRESSION [None]
